FAERS Safety Report 12791153 (Version 3)
Quarter: 2019Q4

REPORT INFORMATION
  Report Type: Spontaneous
  Country: JP (occurrence: JP)
  Receive Date: 20160929
  Receipt Date: 20191106
  Transmission Date: 20200122
  Serious: Yes (Hospitalization, Other)
  Sender: FDA-Public Use
  Company Number: JP-009507513-1508JPN009937

PATIENT
  Age: 35 Year
  Sex: Female
  Weight: 54 kg

DRUGS (5)
  1. BRIDION [Suspect]
     Active Substance: SUGAMMADEX
     Indication: DYSPNOEA
  2. SENNOSIDE [Concomitant]
     Active Substance: SENNOSIDES
     Indication: CONSTIPATION
     Dosage: 2 DF, QD
     Route: 048
     Dates: start: 20150818, end: 20150818
  3. ANAPEINE [Concomitant]
     Active Substance: ROPIVACAINE HYDROCHLORIDE
     Indication: EPIDURAL ANAESTHESIA
     Dosage: UNK
     Route: 008
     Dates: start: 20150819, end: 20150819
  4. BRIDION [Suspect]
     Active Substance: SUGAMMADEX
     Indication: NEUROMUSCULAR BLOCKADE REVERSAL
     Dosage: 200 MG, QD
     Route: 042
     Dates: start: 20150819, end: 20150819
  5. ESLAX INTRAVENOUS 25MG/2.5ML [Suspect]
     Active Substance: ROCURONIUM BROMIDE
     Indication: ANAESTHESIA PROCEDURE
     Dosage: 50 MILLIGRAM
     Route: 042

REACTIONS (5)
  - Foetal death [Unknown]
  - Dyspnoea [Unknown]
  - Enteritis [Unknown]
  - Maternal exposure during pregnancy [Unknown]
  - Anaphylactic shock [Recovering/Resolving]

NARRATIVE: CASE EVENT DATE: 20150819
